FAERS Safety Report 4824113-5 (Version None)
Quarter: 2005Q4

REPORT INFORMATION
  Report Type: 
  Country: None (occurrence: None)
  Receive Date: 20051108
  Receipt Date: 20051020
  Transmission Date: 20060501
  Serious: Yes (Other)
  Sender: FDA-Public Use
  Company Number: USA0509109051

PATIENT
  Age: 56 Year
  Sex: Female
  Weight: 80 kg

DRUGS (8)
  1. EVISTA [Suspect]
     Indication: OSTEOPENIA
     Dosage: 60 MG DAY
     Dates: start: 20050802, end: 20050913
  2. LIPITOR [Concomitant]
  3. HYDROCHLOROTHIAZID [Concomitant]
  4. LUTEIN [Concomitant]
  5. POTASSIUM CHLORIDE [Concomitant]
  6. ANTACID TAB [Concomitant]
  7. CALCIUM (IBUPROFEN) [Concomitant]
  8. ADVIL [Concomitant]

REACTIONS (4)
  - ARTERIAL DISORDER [None]
  - PHLEBITIS [None]
  - RECTAL HAEMORRHAGE [None]
  - VARICOSE VEIN [None]
